FAERS Safety Report 7096685-4 (Version None)
Quarter: 2010Q4

REPORT INFORMATION
  Report Type: 
  Country: None (occurrence: None)
  Receive Date: 20101111
  Receipt Date: 20101109
  Transmission Date: 20110411
  Serious: Yes (Death, Hospitalization)
  Sender: FDA-Public Use
  Company Number: US-ELI_LILLY_AND_COMPANY-US201011002572

PATIENT
  Sex: Male

DRUGS (33)
  1. GEMCITABINE HCL [Suspect]
     Indication: PANCREATIC CARCINOMA
     Dosage: 1000 MG/M2, UNKNOWN
     Route: 065
     Dates: start: 20100707
  2. NAPROXEN [Concomitant]
     Indication: PAIN
     Route: 048
     Dates: start: 20101005
  3. HYDROCODONE [Concomitant]
     Indication: PAIN
     Route: 048
     Dates: start: 20100629
  4. PAPAYA ENZYME [Concomitant]
     Indication: DYSPEPSIA
     Route: 048
     Dates: start: 20100629
  5. BENICAR [Concomitant]
     Indication: HYPERTENSION
     Route: 048
     Dates: start: 19950101
  6. AMLODIPINE BESYLATE AND BENAZEPRIL HCL [Concomitant]
     Indication: HYPERTENSION
     Route: 048
     Dates: start: 20071102
  7. VITAMIN D [Concomitant]
     Indication: VITAMIN SUPPLEMENTATION
     Route: 048
     Dates: start: 20100629
  8. DOCUSATE [Concomitant]
     Route: 048
     Dates: start: 20100629
  9. REGLAN [Concomitant]
     Indication: NAUSEA
     Route: 048
     Dates: start: 20100629
  10. PRILOSEC [Concomitant]
     Indication: GASTROOESOPHAGEAL REFLUX DISEASE
     Route: 048
     Dates: start: 20100629
  11. ACETAMINOPHEN [Concomitant]
     Indication: PYREXIA
     Route: 048
     Dates: start: 20071102
  12. GINKGO BILOBA [Concomitant]
     Indication: VITAMIN SUPPLEMENTATION
     Route: 048
     Dates: start: 20071102
  13. GINKGO BILOBA [Concomitant]
     Route: 048
     Dates: start: 20100629
  14. VITAMIN E [Concomitant]
     Indication: VITAMIN SUPPLEMENTATION
     Route: 048
     Dates: start: 20071112
  15. FISH OIL [Concomitant]
     Indication: VITAMIN SUPPLEMENTATION
     Route: 048
     Dates: start: 20090316
  16. FLAXSEED OIL [Concomitant]
     Indication: VITAMIN SUPPLEMENTATION
     Route: 048
     Dates: start: 20090316
  17. MULTI-VITAMINS [Concomitant]
     Indication: VITAMIN SUPPLEMENTATION
     Route: 048
     Dates: start: 20100712
  18. SENNA [Concomitant]
     Indication: CONSTIPATION
     Route: 048
     Dates: start: 20100712
  19. ACTOS [Concomitant]
     Indication: DIABETES MELLITUS
     Route: 048
     Dates: start: 20071102
  20. MILK OF MAGNESIA TAB [Concomitant]
     Indication: CONSTIPATION
     Route: 048
     Dates: start: 20100713
  21. DALTEPARIN SODIUM [Concomitant]
     Indication: PROPHYLAXIS
     Route: 048
     Dates: start: 20101011
  22. LASIX [Concomitant]
     Indication: OEDEMA
     Route: 048
     Dates: start: 20100914
  23. SPIRONOLACTONE [Concomitant]
     Indication: OEDEMA
     Route: 048
     Dates: start: 20100928
  24. PREDNISONE [Concomitant]
     Indication: PROPHYLAXIS
     Route: 048
     Dates: start: 20101020, end: 20101021
  25. LOVAZA [Concomitant]
     Indication: MEDICAL DIET
     Route: 048
     Dates: start: 20101005
  26. PERCOCET [Concomitant]
     Indication: PAIN
     Route: 048
     Dates: start: 20100830
  27. NASONEX [Concomitant]
     Indication: NASAL CONGESTION
     Dates: start: 20100810
  28. JANUVIA [Concomitant]
     Indication: DIABETES MELLITUS
     Route: 048
     Dates: start: 20100629
  29. CLOTRIMAZOLE [Concomitant]
     Indication: ORAL CANDIDIASIS
     Route: 048
     Dates: start: 20100709
  30. LORAZEPAM [Concomitant]
     Indication: ANXIETY
     Route: 048
     Dates: start: 20100712
  31. OXYCONTIN [Concomitant]
     Indication: PAIN
     Route: 048
     Dates: start: 20100723
  32. MAGNESIUM HYDROXIDE [Concomitant]
     Indication: CONSTIPATION
     Route: 048
     Dates: start: 20100712
  33. ULTRASE MT20 [Concomitant]
     Indication: DYSPEPSIA

REACTIONS (1)
  - GASTROINTESTINAL HAEMORRHAGE [None]
